FAERS Safety Report 7985146-3 (Version None)
Quarter: 2011Q4

REPORT INFORMATION
  Report Type: 
  Country: None (occurrence: None)
  Receive Date: 20111216
  Receipt Date: 20111212
  Transmission Date: 20120403
  Serious: Yes (Hospitalization, Other)
  Sender: FDA-Public Use
  Company Number: PHHY2011US69140

PATIENT
  Sex: Female

DRUGS (1)
  1. EXTAVIA [Suspect]
     Indication: MULTIPLE SCLEROSIS
     Dosage: 0.25 MG, QOD
     Route: 058
     Dates: start: 20100727

REACTIONS (15)
  - NAUSEA [None]
  - NECK PAIN [None]
  - OEDEMA PERIPHERAL [None]
  - VOMITING [None]
  - MUSCLE SPASMS [None]
  - HEADACHE [None]
  - PAIN [None]
  - FALL [None]
  - ARTHRALGIA [None]
  - HEAD INJURY [None]
  - NERVOUSNESS [None]
  - MEMORY IMPAIRMENT [None]
  - RASH [None]
  - GASTROENTERITIS VIRAL [None]
  - MULTIPLE SCLEROSIS RELAPSE [None]
